FAERS Safety Report 8587583 (Version 3)
Quarter: 2012Q4

REPORT INFORMATION
  Report Type: 
  Country: US (occurrence: US)
  Receive Date: 20120531
  Receipt Date: 20121012
  Transmission Date: 20130627
  Serious: Yes (Other)
  Sender: FDA-Public Use
  Company Number: US-ASTRAZENECA-2012SE33538

PATIENT
  Age: 22925 Day
  Sex: Female
  Weight: 54.9 kg

DRUGS (12)
  1. NEXIUM [Suspect]
     Indication: GASTROOESOPHAGEAL REFLUX DISEASE
     Route: 048
     Dates: start: 2000, end: 2011
  2. NEXIUM [Suspect]
     Indication: GASTROOESOPHAGEAL REFLUX DISEASE
     Route: 048
     Dates: start: 20060815
  3. SYNTHROID/LEVOXYL [Concomitant]
     Dosage: 50 TO 100 MCG
     Route: 048
     Dates: start: 20050818
  4. SYNTHROID/LEVOXYL [Concomitant]
     Dosage: 50 MCG
     Route: 048
     Dates: start: 20050812
  5. BIAXIN XL [Concomitant]
     Dates: start: 20050902
  6. NITROFURANTOIN MCR [Concomitant]
     Dates: start: 20051004
  7. PREDNISONE [Concomitant]
     Route: 048
     Dates: start: 20051130
  8. SPIRIVA [Concomitant]
     Dosage: 18 MCG
     Dates: start: 20060411
  9. LASIX [Concomitant]
     Route: 048
     Dates: start: 20120516
  10. MIDAMOR [Concomitant]
     Route: 048
     Dates: start: 20120516
  11. BENADRYL ALLERGY [Concomitant]
     Route: 048
     Dates: start: 20120516
  12. TYLENOL [Concomitant]
     Dosage: EIGHT HOUR
     Route: 048
     Dates: start: 20120516

REACTIONS (1)
  - Spinal compression fracture [Unknown]
